FAERS Safety Report 5032748-2 (Version None)
Quarter: 2006Q2

REPORT INFORMATION
  Report Type: 
  Country: None (occurrence: None)
  Receive Date: 20060515
  Receipt Date: 20060201
  Transmission Date: 20061013
  Serious: No
  Sender: FDA-Public Use
  Company Number: S06-USA-00389-01

PATIENT
  Age: 87 Year
  Sex: Female

DRUGS (6)
  1. NAMENDA [Suspect]
     Indication: DEMENTIA ALZHEIMER'S TYPE
     Dosage: 10 MG QD PO
     Route: 048
     Dates: start: 20060131
  2. NAMENDA [Suspect]
     Indication: DEMENTIA ALZHEIMER'S TYPE
     Dosage: 5 MG QD PO
     Route: 048
     Dates: start: 20060124, end: 20060130
  3. MESTINON [Concomitant]
  4. PRENDISONE [Concomitant]
  5. CELEXA [Concomitant]
  6. RANITIDINE [Concomitant]

REACTIONS (1)
  - DIZZINESS [None]
